FAERS Safety Report 8007828-X (Version None)
Quarter: 2011Q4

REPORT INFORMATION
  Report Type: 
  Country: None (occurrence: None)
  Receive Date: 20111227
  Receipt Date: 20111222
  Transmission Date: 20120403
  Serious: Yes (Other)
  Sender: FDA-Public Use
  Company Number: AR-B.I. PHARMACEUTICALS,INC./RIDGEFIELD-2011-RA-00378RA

PATIENT
  Age: 75 Year
  Sex: Male

DRUGS (2)
  1. IRON [Concomitant]
     Indication: HAEMATOCRIT DECREASED
     Route: 048
  2. PRADAXA [Suspect]
     Indication: CEREBROVASCULAR ACCIDENT PROPHYLAXIS
     Dosage: 300 MG
     Route: 048
     Dates: start: 20110813

REACTIONS (3)
  - HAEMATOCRIT DECREASED [None]
  - BRONCHOSPASM [None]
  - DYSPEPSIA [None]
